FAERS Safety Report 17706407 (Version 1)
Quarter: 2020Q2

REPORT INFORMATION
  Report Type: Report from Study
  Country: US (occurrence: US)
  Receive Date: 20200424
  Receipt Date: 20200424
  Transmission Date: 20200714
  Serious: Yes (Hospitalization)
  Sender: FDA-Public Use
  Company Number: PHHY2014US150598

PATIENT
  Age: 88 Year
  Sex: Male
  Weight: 78.9 kg

DRUGS (10)
  1. SYMBICORT [Concomitant]
     Active Substance: BUDESONIDE\FORMOTEROL FUMARATE DIHYDRATE
     Indication: ASTHMA
  2. NITROGLYCERIN. [Concomitant]
     Active Substance: NITROGLYCERIN
     Indication: CORONARY ARTERY DISEASE
     Dosage: 0.4 MG, PRN
     Route: 060
     Dates: start: 201107
  3. MAXIDEX [Suspect]
     Active Substance: DEXAMETHASONE
     Indication: PLASMA CELL MYELOMA
     Dosage: 20 MG, QW4
     Route: 048
     Dates: start: 20140923, end: 20141114
  4. AMLODIPINE [Concomitant]
     Active Substance: AMLODIPINE BESYLATE
     Indication: CHRONIC OBSTRUCTIVE PULMONARY DISEASE
     Dosage: 2.5 MG, QD
     Route: 048
     Dates: start: 201107
  5. METFORMIN [Concomitant]
     Active Substance: METFORMIN HYDROCHLORIDE
     Indication: DIABETES MELLITUS
     Dosage: 100 MG, BID
     Route: 048
     Dates: start: 2005
  6. BORTEZOMIB. [Suspect]
     Active Substance: BORTEZOMIB
     Indication: PLASMA CELL MYELOMA
     Dosage: 2.4 MG, QW2
     Route: 058
     Dates: start: 20140923, end: 20141114
  7. SYMBICORT [Concomitant]
     Active Substance: BUDESONIDE\FORMOTEROL FUMARATE DIHYDRATE
     Indication: CHRONIC OBSTRUCTIVE PULMONARY DISEASE
     Dosage: 160 MG, BID
     Route: 055
     Dates: start: 201107
  8. FERROUS SULFATE. [Concomitant]
     Active Substance: FERROUS SULFATE
     Indication: ANAEMIA
     Dosage: 325 MG, TID
     Route: 048
     Dates: start: 2005
  9. FARYDAK [Suspect]
     Active Substance: PANOBINOSTAT
     Indication: PLASMA CELL MYELOMA
     Dosage: 15 MG, QW3
     Route: 048
     Dates: start: 20140923, end: 20141114
  10. PLAVIX [Concomitant]
     Active Substance: CLOPIDOGREL BISULFATE
     Indication: CHRONIC OBSTRUCTIVE PULMONARY DISEASE
     Dosage: 75 MG, QD
     Route: 048
     Dates: start: 201107

REACTIONS (9)
  - Vertigo [Not Recovered/Not Resolved]
  - Urinary tract infection [Recovering/Resolving]
  - Asthenia [Not Recovered/Not Resolved]
  - Anxiety [Unknown]
  - Diarrhoea [Recovering/Resolving]
  - Depression [Unknown]
  - Dehydration [Recovered/Resolved]
  - Memory impairment [Unknown]
  - Hypotension [Recovered/Resolved]

NARRATIVE: CASE EVENT DATE: 20141107
